FAERS Safety Report 9734008 (Version 2)
Quarter: 2013Q4

REPORT INFORMATION
  Report Type: Spontaneous
  Country: US (occurrence: US)
  Receive Date: 20131205
  Receipt Date: 20131205
  Transmission Date: 20140711
  Serious: Yes (Disabling)
  Sender: FDA-Public Use
  Company Number: PHEH2013US019416

PATIENT
  Age: 88 Year
  Sex: Male
  Weight: 161 kg

DRUGS (7)
  1. DIOVAN [Suspect]
     Indication: CARDIAC FAILURE CONGESTIVE
     Dosage: 80 MG, QD
     Route: 048
     Dates: start: 20130730, end: 20130804
  2. LEVOTHYROXINE [Concomitant]
     Dosage: 100 UG, UNK
  3. CARVEDILOL [Concomitant]
     Dosage: 3.125 MG, UNK
  4. SPIRONOLACTONE [Concomitant]
     Dosage: 25 MG, UNK
  5. FUROSEMIDE [Concomitant]
     Dosage: 40 MG, UNK
  6. COQ10 [Concomitant]
     Dosage: UNK UKN, UNK
  7. LISINOPRIL [Concomitant]

REACTIONS (8)
  - Gait disturbance [Unknown]
  - Fatigue [Recovered/Resolved]
  - Dizziness [Recovered/Resolved]
  - Lymphoedema [Unknown]
  - Feeling abnormal [Unknown]
  - Discomfort [Unknown]
  - Insomnia [Unknown]
  - Asthenia [Unknown]
